FAERS Safety Report 4675167-0 (Version None)
Quarter: 2005Q2

REPORT INFORMATION
  Report Type: 
  Country: None (occurrence: None)
  Receive Date: 20050526
  Receipt Date: 20050518
  Transmission Date: 20051028
  Serious: Yes (Hospitalization)
  Sender: FDA-Public Use
  Company Number: DE-MERCK-0505DEU00143

PATIENT
  Sex: Female

DRUGS (4)
  1. VIOXX [Suspect]
     Indication: PAIN
     Route: 048
     Dates: start: 20021024, end: 20050101
  2. VIOXX [Suspect]
     Route: 048
     Dates: start: 20050101
  3. FENTANYL [Suspect]
     Indication: PAIN
     Route: 065
     Dates: start: 20021024
  4. DICLOFENAC [Suspect]
     Route: 048
     Dates: start: 20050101, end: 20050101

REACTIONS (6)
  - CONSTIPATION [None]
  - DEEP VEIN THROMBOSIS [None]
  - GASTROINTESTINAL DISORDER [None]
  - PALPITATIONS [None]
  - STOMACH DISCOMFORT [None]
  - THROMBOSIS [None]
